FAERS Safety Report 12837192 (Version 1)
Quarter: 2016Q4

REPORT INFORMATION
  Report Type: Spontaneous
  Country: None (occurrence: US)
  Receive Date: 20161008
  Receipt Date: 20161008
  Transmission Date: 20170207
  Serious: Yes (Death, Hospitalization)
  Sender: FDA-Public Use
  Company Number: None

PATIENT
  Age: 71 Year
  Sex: Male
  Weight: 59 kg

DRUGS (1)
  1. ARICEPT [Suspect]
     Active Substance: DONEPEZIL HYDROCHLORIDE
     Indication: DEMENTIA
     Dosage: ?          QUANTITY:1 TABLET(S);?
     Route: 048
     Dates: start: 20160830, end: 20160908

REACTIONS (6)
  - Hypotension [None]
  - Upper gastrointestinal haemorrhage [None]
  - Rectal haemorrhage [None]
  - Loss of consciousness [None]
  - Anal incontinence [None]
  - Hypovolaemic shock [None]

NARRATIVE: CASE EVENT DATE: 20160908
